FAERS Safety Report 6839477-0 (Version None)
Quarter: 2010Q3

REPORT INFORMATION
  Report Type: 
  Country: None (occurrence: None)
  Receive Date: 20100714
  Receipt Date: 20090803
  Transmission Date: 20110219
  Serious: No
  Sender: FDA-Public Use
  Company Number: A0800120A

PATIENT
  Age: 6 Year
  Sex: Female

DRUGS (5)
  1. FLOVENT [Suspect]
     Indication: ASTHMA
     Dosage: 2PUFF TWICE PER DAY
     Route: 055
     Dates: start: 20080701
  2. VERAMYST [Suspect]
     Indication: CHRONIC SINUSITIS
     Dosage: 1SPR TWICE PER DAY
     Route: 045
     Dates: start: 20081201, end: 20090803
  3. ZYRTEC [Concomitant]
  4. SINGULAIR [Concomitant]
  5. VERAMYST [Concomitant]

REACTIONS (4)
  - ABNORMAL BEHAVIOUR [None]
  - AGITATION [None]
  - DISTURBANCE IN ATTENTION [None]
  - FEELING ABNORMAL [None]
